FAERS Safety Report 10041221 (Version 1)
Quarter: 2014Q1

REPORT INFORMATION
  Report Type: Spontaneous
  Country: AU (occurrence: None)
  Receive Date: 20140325
  Receipt Date: 20140325
  Transmission Date: 20141002
  Serious: Yes (Other)
  Sender: FDA-Public Use
  Company Number: 2013000556

PATIENT
  Age: 73 Year
  Sex: Female

DRUGS (5)
  1. ACEON [Suspect]
     Indication: HYPERTENSION
     Route: 048
     Dates: end: 19960613
  2. AUGMENTIN [Suspect]
     Indication: PRODUCT USED FOR UNKNOWN INDICATION
     Dosage: 3, ORAL
     Route: 048
  3. ASPIRINE (ACETYLSALICYLIC ACID) [Concomitant]
  4. METFORMIN (METFORMIN) [Concomitant]
  5. RASTINON (TOLBUTAMIDE) [Concomitant]

REACTIONS (3)
  - Aphasia [None]
  - Inappropriate antidiuretic hormone secretion [None]
  - Hyponatraemia [None]
